FAERS Safety Report 8964137 (Version 1)
Quarter: 2012Q4

REPORT INFORMATION
  Report Type: 
  Country: CA (occurrence: CA)
  Receive Date: 20121213
  Receipt Date: 20121213
  Transmission Date: 20130627
  Serious: Yes (Hospitalization)
  Sender: FDA-Public Use
  Company Number: CA-B.I. PHARMACEUTICALS,INC./RIDGEFIELD-2012-CN-02511CN

PATIENT
  Age: 84 Year
  Sex: Female
  Weight: 50 kg

DRUGS (11)
  1. PRADAX [Suspect]
     Dosage: 220 mg
     Route: 065
  2. AMLODIPINE [Concomitant]
  3. CEPHALEXIN [Concomitant]
  4. DICLOFENAC [Concomitant]
  5. HUMALOG [Concomitant]
  6. IRBESARTAN/HCTZ [Concomitant]
  7. LANTUS [Concomitant]
     Route: 058
  8. LYRICA [Concomitant]
  9. METOPROLOL [Concomitant]
  10. PREDNISONE [Concomitant]
  11. SIMVASTATIN [Concomitant]

REACTIONS (6)
  - Asthenia [Unknown]
  - Chest pain [Unknown]
  - Diarrhoea [Unknown]
  - Dizziness [Unknown]
  - Dyspnoea [Unknown]
  - Haemoglobin decreased [Unknown]
